FAERS Safety Report 25865212 (Version 4)
Quarter: 2025Q4

REPORT INFORMATION
  Report Type: Report from Study
  Country: US (occurrence: US)
  Receive Date: 20250930
  Receipt Date: 20251023
  Transmission Date: 20260117
  Serious: Yes (Hospitalization, Other)
  Sender: ABBVIE
  Company Number: US-ABBVIE-6478755

PATIENT
  Age: 81 Year
  Sex: Male
  Weight: 58.513 kg

DRUGS (16)
  1. FOSCARBIDOPA\FOSLEVODOPA [Suspect]
     Active Substance: FOSCARBIDOPA\FOSLEVODOPA
     Indication: Parkinson^s disease
     Dosage: LOADING DOSE DRUG:0 ML?CONTINUOUS RATE PUMP SETTING BASE0.20 ML/H?CONTINUOUS RATE PUMP SETTING HI...
     Route: 058
     Dates: start: 20250619, end: 20250619
  2. FOSCARBIDOPA\FOSLEVODOPA [Suspect]
     Active Substance: FOSCARBIDOPA\FOSLEVODOPA
     Dosage: LOADING DOSE DRUG:0 ML?ONTINUOUS RATE PUMP SETTING BASE0.18ML/H?CONTINUOUS RATE PUMP SETTING HIGH...
     Route: 058
     Dates: start: 20250619, end: 20250620
  3. FOSCARBIDOPA\FOSLEVODOPA [Suspect]
     Active Substance: FOSCARBIDOPA\FOSLEVODOPA
     Dosage: LOADING DOSE DRUG:0 ML?ONTINUOUS RATE PUMP SETTING BASE0.20 ML/H?CONTINUOUS RATE PUMP SETTING HIG...
     Route: 058
     Dates: start: 20250620, end: 20250623
  4. FOSCARBIDOPA\FOSLEVODOPA [Suspect]
     Active Substance: FOSCARBIDOPA\FOSLEVODOPA
     Dosage: LOADING DOSE DRUG:0 ML?ONTINUOUS RATE PUMP SETTING BASE0.21ML/H?CONTINUOUS RATE PUMP SETTING HIGH...
     Route: 058
     Dates: start: 20250623, end: 20250709
  5. FOSCARBIDOPA\FOSLEVODOPA [Suspect]
     Active Substance: FOSCARBIDOPA\FOSLEVODOPA
     Dosage: LOADING DOSE DRUG:0 ML?ONTINUOUS RATE PUMP SETTING BASE0.22 ML/H?CONTINUOUS RATE PUMP SETTING HIG...
     Route: 058
     Dates: start: 20250709, end: 20250714
  6. FOSCARBIDOPA\FOSLEVODOPA [Suspect]
     Active Substance: FOSCARBIDOPA\FOSLEVODOPA
     Dosage: LOADING DOSE DRUG:0 ML?ONTINUOUS RATE PUMP SETTING BASE0.21ML/H?CONTINUOUS RATE PUMP SETTING HIGH...
     Route: 058
     Dates: start: 20250714, end: 20250723
  7. FOSCARBIDOPA\FOSLEVODOPA [Suspect]
     Active Substance: FOSCARBIDOPA\FOSLEVODOPA
     Dosage: LOADING DOSE DRUG:0 ML?ONTINUOUS RATE PUMP SETTING BASE0.21ML/H?CONTINUOUS RATE PUMP SETTING HIGH...
     Route: 058
     Dates: start: 20250723, end: 20250827
  8. FOSCARBIDOPA\FOSLEVODOPA [Suspect]
     Active Substance: FOSCARBIDOPA\FOSLEVODOPA
     Dosage: LOADING DOSE DRUG:0.22ML?ONTINUOUS RATE PUMP SETTING BASE0.21ML/H?CONTINUOUS RATE PUMP SETTING HI...
     Route: 058
     Dates: start: 20250827
  9. CARVEDILOL [Concomitant]
     Active Substance: CARVEDILOL
     Indication: Hypertension
     Route: 048
     Dates: start: 1994, end: 20250917
  10. ATORVASTATIN [Concomitant]
     Active Substance: ATORVASTATIN
     Indication: Hypercholesterolaemia
     Route: 048
     Dates: start: 1994, end: 20250917
  11. METFORMIN [Concomitant]
     Active Substance: METFORMIN HYDROCHLORIDE
     Indication: Diabetes mellitus
     Route: 048
     Dates: start: 1995
  12. INSULIN NOS [Concomitant]
     Active Substance: INSULIN NOS
     Indication: Diabetes mellitus
     Dosage: TIME INTERVAL: 0.33333333 DAYS
     Route: 058
     Dates: start: 2020
  13. VITAMIN D [Concomitant]
     Active Substance: VITAMIN D NOS
     Indication: Vitamin supplementation
     Dosage: DOSE: 1 CAPSULE
     Route: 048
     Dates: start: 2015
  14. CALCIUM [Concomitant]
     Active Substance: CALCIUM
     Indication: Mineral supplementation
     Dosage: DOSE: 1 TABLET
     Route: 048
     Dates: start: 2015
  15. VITAMIN B12 [Concomitant]
     Active Substance: CYANOCOBALAMIN
     Indication: Vitamin supplementation
     Route: 048
     Dates: start: 2015
  16. RYTARY [Concomitant]
     Active Substance: CARBIDOPA\LEVODOPA
     Indication: Parkinson^s disease
     Route: 048
     Dates: start: 2024, end: 2025

REACTIONS (3)
  - Transient ischaemic attack [Recovered/Resolved]
  - Acute myocardial infarction [Recovered/Resolved]
  - Atrial fibrillation [Not Recovered/Not Resolved]

NARRATIVE: CASE EVENT DATE: 20250917
